FAERS Safety Report 22260789 (Version 3)
Quarter: 2023Q2

REPORT INFORMATION
  Report Type: Spontaneous
  Country: US (occurrence: US)
  Receive Date: 20230427
  Receipt Date: 20230605
  Transmission Date: 20230722
  Serious: Yes (Life-Threatening)
  Sender: FDA-Public Use
  Company Number: US-VERTEX PHARMACEUTICALS-2022-018836

PATIENT
  Age: 17 Year
  Sex: Female

DRUGS (13)
  1. TRIKAFTA [Suspect]
     Active Substance: ELEXACAFTOR\IVACAFTOR\TEZACAFTOR
     Indication: Cystic fibrosis
     Dosage: 2 TABS AM AND 1 TAB PM
     Route: 048
     Dates: start: 20200123
  2. AZITHROMYCIN [Concomitant]
     Active Substance: AZITHROMYCIN
  3. KITABIS PAK [Concomitant]
     Active Substance: TOBRAMYCIN
     Dosage: 300/5 ML NEB 20 ML=4
     Route: 055
  4. LORATADINE [Concomitant]
     Active Substance: LORATADINE
  5. ONDANSETRON [Concomitant]
     Active Substance: ONDANSETRON
  6. OXYBUTYNIN [Concomitant]
     Active Substance: OXYBUTYNIN
  7. PANTOPRAZOLE SODIUM [Concomitant]
     Active Substance: PANTOPRAZOLE SODIUM
  8. PROMETHAZINE [Concomitant]
     Active Substance: PROMETHAZINE HYDROCHLORIDE
  9. PULMOZYME [Concomitant]
     Active Substance: DORNASE ALFA
     Dosage: 2.5 MG/2.5 ML NEB 90=30
     Route: 055
  10. TAMSULOSIN [Concomitant]
     Active Substance: TAMSULOSIN
  11. URSODIOL [Concomitant]
     Active Substance: URSODIOL
  12. VITAMIN D3 [Concomitant]
     Active Substance: CHOLECALCIFEROL
     Dosage: 5000 U CAP
  13. ZENPEP [Concomitant]
     Active Substance: PANCRELIPASE AMYLASE\PANCRELIPASE LIPASE\PANCRELIPASE PROTEASE
     Dosage: 20000 U CAP

REACTIONS (3)
  - Haematochezia [Recovered/Resolved]
  - Haemorrhoids [Recovered/Resolved]
  - Constipation [Recovered/Resolved]

NARRATIVE: CASE EVENT DATE: 20221204
